FAERS Safety Report 21718521 (Version 1)
Quarter: 2022Q4

REPORT INFORMATION
  Report Type: Spontaneous
  Country: FR (occurrence: FR)
  Receive Date: 20221212
  Receipt Date: 20221212
  Transmission Date: 20230112
  Serious: Yes (Death, Other)
  Sender: FDA-Public Use
  Company Number: FR-BAXTER-2022BAX026212

PATIENT
  Age: 57 Year
  Sex: Female

DRUGS (3)
  1. CYCLOPHOSPHAMIDE [Suspect]
     Active Substance: CYCLOPHOSPHAMIDE
     Indication: Product used for unknown indication
     Dosage: 300 MG/M2/DOSE 1 DOSE(S)/WEEK 3 WEEK(S)/CYCLE, TREATMENT LINE NUMBER 2
     Route: 065
     Dates: end: 20180301
  2. DEXAMETHASONE [Suspect]
     Active Substance: DEXAMETHASONE
     Indication: Product used for unknown indication
     Dosage: 40 MG/DOSE 1 DOSE(S)/WEEK 3 WEEK(S)/CYCLE, TREATMENT LINE NUMBER 2
     Route: 065
     Dates: end: 20180301
  3. DARATUMUMAB [Suspect]
     Active Substance: DARATUMUMAB
     Indication: Product used for unknown indication
     Dosage: 16 MG/M2/DOSE 1 DOSE(S)/WEEK 4 WEEK(S)/CYCLE, TREATMENT LINE NUMBER 2
     Route: 065
     Dates: end: 20180301

REACTIONS (1)
  - Disease progression [Fatal]

NARRATIVE: CASE EVENT DATE: 20180319
